FAERS Safety Report 18016074 (Version 2)
Quarter: 2020Q3

REPORT INFORMATION
  Report Type: Spontaneous
  Country: FR (occurrence: FR)
  Receive Date: 20200713
  Receipt Date: 20200807
  Transmission Date: 20201103
  Serious: Yes (Disabling)
  Sender: FDA-Public Use
  Company Number: NVSC2020FR165335

PATIENT
  Age: 25 Year
  Sex: Male

DRUGS (2)
  1. NORDIMET [Concomitant]
     Active Substance: METHOTREXATE
     Indication: PRODUCT USED FOR UNKNOWN INDICATION
     Dosage: UNK
     Route: 065
  2. COSENTYX [Suspect]
     Active Substance: SECUKINUMAB
     Indication: ANKYLOSING SPONDYLITIS
     Dosage: 300 MG, QW (2 PENS)
     Route: 058
     Dates: start: 20200512

REACTIONS (5)
  - Injection site pain [Recovered/Resolved]
  - Musculoskeletal stiffness [Recovered/Resolved]
  - Dizziness [Recovered/Resolved]
  - Movement disorder [Recovered/Resolved]
  - Headache [Recovered/Resolved]
